FAERS Safety Report 4474323-4 (Version None)
Quarter: 2004Q4

REPORT INFORMATION
  Report Type: 
  Country: None (occurrence: None)
  Receive Date: 20041012
  Receipt Date: 20040930
  Transmission Date: 20050328
  Serious: Yes (Other)
  Sender: FDA-Public Use
  Company Number: 2004236578DE

PATIENT
  Sex: Female

DRUGS (1)
  1. CABERGOLINE [Suspect]
     Indication: RESTLESS LEGS SYNDROME
     Dosage: SEE IMAGE, ORAL
     Route: 048
     Dates: start: 19980101

REACTIONS (1)
  - AORTIC VALVE INCOMPETENCE [None]
